FAERS Safety Report 4865966-4 (Version None)
Quarter: 2005Q4

REPORT INFORMATION
  Report Type: 
  Country: None (occurrence: None)
  Receive Date: 20051226
  Receipt Date: 20051207
  Transmission Date: 20060501
  Serious: Yes (Life-Threatening, Hospitalization)
  Sender: FDA-Public Use
  Company Number: PHBS2005JP18117

PATIENT
  Age: 35 Year
  Sex: Male

DRUGS (5)
  1. SANDIMMUNE [Suspect]
     Indication: RENAL TRANSPLANT
     Dosage: 200 MG/D
     Route: 048
  2. PREDNISOLONE [Concomitant]
     Indication: RENAL TRANSPLANT
     Dosage: 10 MG/D
     Route: 048
  3. AZATHIOPRINE [Concomitant]
     Indication: RENAL TRANSPLANT
     Dosage: 50 MG/D
     Route: 048
  4. ANTIHYPERTENSIVES [Concomitant]
  5. ANTICOAGULANTS [Concomitant]

REACTIONS (18)
  - AORTIC DISSECTION [None]
  - BLOOD CREATININE INCREASED [None]
  - BLOOD POTASSIUM INCREASED [None]
  - BLOOD PRESSURE INCREASED [None]
  - BLOOD UREA INCREASED [None]
  - CARDIOMEGALY [None]
  - CHEST PAIN [None]
  - HAEMATOCRIT DECREASED [None]
  - HAEMODIALYSIS [None]
  - HEART RATE INCREASED [None]
  - INFLAMMATION [None]
  - PERICARDIAL EFFUSION [None]
  - POST PROCEDURAL COMPLICATION [None]
  - PYREXIA [None]
  - QRS AXIS ABNORMAL [None]
  - RENAL IMPAIRMENT [None]
  - SURGERY [None]
  - URINE OUTPUT DECREASED [None]
